FAERS Safety Report 10417627 (Version 1)
Quarter: 2014Q2

REPORT INFORMATION
  Report Type: Spontaneous
  Country: US (occurrence: None)
  Receive Date: 20140609
  Receipt Date: 20140609
  Transmission Date: 20141212
  Serious: No
  Sender: FDA-Public Use
  Company Number: 2014TUS001348

PATIENT
  Age: 62 Year
  Sex: Male
  Weight: 70.3 kg

DRUGS (11)
  1. BRINTELLIX [Suspect]
     Indication: MAJOR DEPRESSION
     Route: 048
     Dates: start: 20140213, end: 20140221
  2. ASPIRIN [Concomitant]
  3. ALTACE [Concomitant]
  4. LAMICTAL [Concomitant]
  5. CRESTOR [Concomitant]
  6. INSULIN [Concomitant]
  7. METFORMIN [Concomitant]
  8. OMEGA 3 [Concomitant]
  9. VITAMIN D3 (COLECALCIFEROL) [Concomitant]
  10. LUTEIN [Concomitant]
  11. COENZYME Q10 [Concomitant]

REACTIONS (1)
  - Pain [None]
